FAERS Safety Report 5890958-6 (Version None)
Quarter: 2008Q3

REPORT INFORMATION
  Report Type: 
  Country: None (occurrence: None)
  Receive Date: 20080922
  Receipt Date: 20080912
  Transmission Date: 20090109
  Serious: Yes (Hospitalization)
  Sender: FDA-Public Use
  Company Number: A0748246A

PATIENT
  Age: 49 Year
  Sex: Male
  Weight: 90.9 kg

DRUGS (5)
  1. AVANDIA [Suspect]
     Indication: DIABETES MELLITUS
     Dosage: 4MG TWICE PER DAY
     Route: 048
     Dates: start: 20050101, end: 20070601
  2. METFORMIN HCL [Concomitant]
  3. ASPIRIN [Concomitant]
  4. LANTUS [Concomitant]
  5. HYDROCODONE BITARTRATE [Concomitant]

REACTIONS (2)
  - HEART INJURY [None]
  - MYOCARDIAL INFARCTION [None]
